FAERS Safety Report 23964113 (Version 1)
Quarter: 2024Q2

REPORT INFORMATION
  Report Type: Spontaneous
  Country: US (occurrence: None)
  Receive Date: 20240611
  Receipt Date: 20240611
  Transmission Date: 20240715
  Serious: Yes (Other)
  Sender: FDA-Public Use
  Company Number: None

PATIENT
  Age: 33 Year
  Sex: Female
  Weight: 90 kg

DRUGS (1)
  1. GAMUNEX-C [Suspect]
     Active Substance: HUMAN IMMUNOGLOBULIN G
     Indication: Chronic inflammatory demyelinating polyradiculoneuropathy
     Dosage: 45 G GRAM(S) QD X 4 DAYS  Q4WKS INTRAVENOUS?
     Route: 042
     Dates: start: 20240601

REACTIONS (7)
  - Vomiting [None]
  - Migraine [None]
  - Pain in extremity [None]
  - Pain in extremity [None]
  - Neuralgia [None]
  - Pain [None]
  - Vomiting [None]

NARRATIVE: CASE EVENT DATE: 20240610
